FAERS Safety Report 9885918 (Version 1)
Quarter: 2014Q1

REPORT INFORMATION
  Report Type: Spontaneous
  Country: GB (occurrence: None)
  Receive Date: 20140206
  Receipt Date: 20140206
  Transmission Date: 20141002
  Serious: Yes (Other)
  Sender: FDA-Public Use
  Company Number: AUR-APL-2014-01332

PATIENT
  Age: 47 Year
  Sex: Male
  Weight: 69 kg

DRUGS (3)
  1. MIRTAZAPINE (MIRTAZAPINE) [Suspect]
     Indication: PRODUCT USED FOR UNKNOWN INDICATION
     Dosage: UNKNOWN?
     Dates: start: 20140117
  2. FLUOXETINE (FLUOXETINE) [Concomitant]
  3. RANITIDINE (RANITIDINE) [Concomitant]

REACTIONS (2)
  - Restless legs syndrome [None]
  - Condition aggravated [None]
